FAERS Safety Report 25984181 (Version 1)
Quarter: 2025Q4

REPORT INFORMATION
  Report Type: Spontaneous
  Country: SA (occurrence: SA)
  Receive Date: 20251031
  Receipt Date: 20251031
  Transmission Date: 20260117
  Serious: Yes (Other)
  Sender: AMGEN
  Company Number: SA-AMGEN-SAUSP2025213892

PATIENT
  Age: 27 Year
  Sex: Male

DRUGS (14)
  1. ADALIMUMAB [Suspect]
     Active Substance: ADALIMUMAB
     Indication: Optic neuritis
     Dosage: 40 MILLIGRAM, Q2WK
     Route: 065
  2. ADALIMUMAB [Suspect]
     Active Substance: ADALIMUMAB
     Indication: Behcet^s syndrome
  3. TRIMETHOPRIM [Concomitant]
     Active Substance: TRIMETHOPRIM
     Indication: Optic neuritis
     Route: 048
  4. TRIMETHOPRIM [Concomitant]
     Active Substance: TRIMETHOPRIM
     Indication: Behcet^s syndrome
  5. SULFAMETHOXAZOLE [Concomitant]
     Active Substance: SULFAMETHOXAZOLE
     Indication: Optic neuritis
     Route: 048
  6. SULFAMETHOXAZOLE [Concomitant]
     Active Substance: SULFAMETHOXAZOLE
     Indication: Behcet^s syndrome
  7. CLINDAMYCIN [Concomitant]
     Active Substance: CLINDAMYCIN
     Indication: Optic neuritis
     Route: 048
  8. CLINDAMYCIN [Concomitant]
     Active Substance: CLINDAMYCIN
     Indication: Behcet^s syndrome
  9. PREDNISONE [Concomitant]
     Active Substance: PREDNISONE
     Indication: Optic neuritis
     Dosage: 60 MILLIGRAM
     Route: 048
  10. PREDNISONE [Concomitant]
     Active Substance: PREDNISONE
     Indication: Behcet^s syndrome
     Dosage: 60 MILLIGRAM (RESTARTED)
     Route: 048
  11. PREDNISONE [Concomitant]
     Active Substance: PREDNISONE
     Dosage: 5 UNK
     Route: 048
  12. PREDNISONE [Concomitant]
     Active Substance: PREDNISONE
     Dosage: 60 MILLIGRAM
     Route: 048
  13. MYCOPHENOLATE MOFETIL [Concomitant]
     Active Substance: MYCOPHENOLATE MOFETIL
     Indication: Optic neuritis
     Dosage: 500 MILLIGRAM
     Route: 048
  14. MYCOPHENOLATE MOFETIL [Concomitant]
     Active Substance: MYCOPHENOLATE MOFETIL
     Indication: Behcet^s syndrome

REACTIONS (5)
  - Retinitis [Unknown]
  - Optic neuritis [Unknown]
  - Drug effective for unapproved indication [Unknown]
  - Mouth ulceration [Unknown]
  - Off label use [Unknown]
